FAERS Safety Report 11791864 (Version 2)
Quarter: 2015Q4

REPORT INFORMATION
  Report Type: Spontaneous
  Country: SE (occurrence: SE)
  Receive Date: 20151201
  Receipt Date: 20151209
  Transmission Date: 20160305
  Serious: Yes (Other)
  Sender: FDA-Public Use
  Company Number: SE-GILEAD-2015-0183902

PATIENT
  Age: 66 Year
  Sex: Male

DRUGS (18)
  1. ACETYLSALICYLIC ACID [Concomitant]
     Active Substance: ASPIRIN
  2. FOLACIN                            /00024201/ [Concomitant]
     Active Substance: FOLIC ACID
  3. SIMVASTATIN ARROW [Concomitant]
     Active Substance: SIMVASTATIN
  4. FINASTERID ACTAVIS [Concomitant]
     Active Substance: FINASTERIDE
  5. KALCIPOS-D [Concomitant]
     Active Substance: CALCIUM CARBONATE\CHOLECALCIFEROL
  6. NASONEX [Concomitant]
     Active Substance: MOMETASONE FUROATE
  7. VIRAMUNE [Suspect]
     Active Substance: NEVIRAPINE
     Indication: HIV INFECTION
     Dosage: 1 DF, QD
     Route: 048
     Dates: start: 20050804
  8. OMEPRAZOL                          /00661201/ [Concomitant]
     Active Substance: OMEPRAZOLE
  9. SPIRIVA [Concomitant]
     Active Substance: TIOTROPIUM BROMIDE MONOHYDRATE
  10. BEHEPAN                            /00056201/ [Concomitant]
  11. SYMBICORT [Concomitant]
     Active Substance: BUDESONIDE\FORMOTEROL FUMARATE DIHYDRATE
  12. ALVEDON DOS [Concomitant]
  13. SELOKENZOC [Concomitant]
     Active Substance: METOPROLOL SUCCINATE
  14. ENALAPRIL ACTAVIS [Concomitant]
     Active Substance: ENALAPRIL
  15. XATRAL [Concomitant]
     Active Substance: ALFUZOSIN
  16. BRICANYL [Concomitant]
     Active Substance: TERBUTALINE SULFATE
  17. TRUVADA [Suspect]
     Active Substance: EMTRICITABINE\TENOFOVIR DISOPROXIL FUMARATE
     Indication: HIV INFECTION
     Dosage: 1 DF, QD
     Route: 048
     Dates: start: 20130905
  18. KIVEXA [Suspect]
     Active Substance: ABACAVIR SULFATE\LAMIVUDINE
     Indication: HIV INFECTION
     Dosage: 1 DF, QD
     Route: 048
     Dates: start: 20060201, end: 20130905

REACTIONS (1)
  - Stress cardiomyopathy [Unknown]

NARRATIVE: CASE EVENT DATE: 20150826
